FAERS Safety Report 25191934 (Version 1)
Quarter: 2025Q2

REPORT INFORMATION
  Report Type: Spontaneous
  Country: US (occurrence: US)
  Receive Date: 20250414
  Receipt Date: 20250414
  Transmission Date: 20250717
  Serious: Yes (Death, Other)
  Sender: AMGEN
  Company Number: US-AMGEN-USASP2025070951

PATIENT

DRUGS (1)
  1. RITUXIMAB [Suspect]
     Active Substance: RITUXIMAB
     Indication: Product used for unknown indication
     Route: 065

REACTIONS (8)
  - Death [Fatal]
  - Neoplasm malignant [Fatal]
  - Cardiovascular disorder [Unknown]
  - Disease progression [Unknown]
  - Atrial fibrillation [Unknown]
  - Hypertension [Unknown]
  - Supraventricular tachycardia [Unknown]
  - Adverse event [Unknown]
